FAERS Safety Report 19752525 (Version 1)
Quarter: 2021Q3

REPORT INFORMATION
  Report Type: Spontaneous
  Country: CN (occurrence: CN)
  Receive Date: 20210826
  Receipt Date: 20210826
  Transmission Date: 20211014
  Serious: No
  Sender: FDA-Public Use
  Company Number: CN-LUPIN PHARMACEUTICALS INC.-2021-15763

PATIENT
  Age: 74 Year
  Sex: Male
  Weight: 60 kg

DRUGS (5)
  1. INTERFERON [Suspect]
     Active Substance: INTERFERON
     Indication: COVID-19
     Dosage: 50 MICROGRAM, BID (ATOMISED)
     Route: 065
     Dates: start: 202002
  2. ARBIDOL [Suspect]
     Active Substance: UMIFENOVIR
     Indication: COVID-19
     Dosage: 200 MILLIGRAM, TID (ABIDOR)
     Route: 048
     Dates: start: 202002
  3. LOPINAVIR/RITONAVIR [Suspect]
     Active Substance: LOPINAVIR\RITONAVIR
     Indication: COVID-19
     Dosage: UNK, BID (200 MG/50 MG)
     Route: 048
     Dates: start: 202002
  4. CEFOPERAZONE;SULBACTAM [Suspect]
     Active Substance: CEFOPERAZONE\SULBACTAM
     Indication: COVID-19
     Dosage: 3 GRAM, TID
     Route: 042
     Dates: start: 202002
  5. MOXIFLOXACIN. [Suspect]
     Active Substance: MOXIFLOXACIN
     Indication: COVID-19
     Dosage: 400 MILLIGRAM, QD
     Route: 042
     Dates: start: 202002

REACTIONS (1)
  - Off label use [Unknown]

NARRATIVE: CASE EVENT DATE: 202002
